FAERS Safety Report 10397313 (Version 1)
Quarter: 2014Q3

REPORT INFORMATION
  Report Type: Spontaneous
  Country: IN (occurrence: IN)
  Receive Date: 20140820
  Receipt Date: 20140820
  Transmission Date: 20150326
  Serious: Yes (Other)
  Sender: FDA-Public Use
  Company Number: PHHY2014IN102296

PATIENT
  Age: 50 Year
  Sex: Female

DRUGS (2)
  1. ALPRAZOLAM. [Suspect]
     Active Substance: ALPRAZOLAM
     Indication: INSOMNIA
     Dosage: 20 DF, DAILY
  2. ALPRAZOLAM. [Suspect]
     Active Substance: ALPRAZOLAM
     Indication: HEAD DISCOMFORT
     Dosage: 1 DF, DAILY

REACTIONS (13)
  - Soliloquy [Unknown]
  - Drug withdrawal syndrome [Recovering/Resolving]
  - Insomnia [Recovering/Resolving]
  - Headache [Unknown]
  - Drug dependence [Recovering/Resolving]
  - Feeling jittery [Unknown]
  - Restlessness [Unknown]
  - Memory impairment [Unknown]
  - Decreased appetite [Unknown]
  - Discomfort [Unknown]
  - Anxiety [Unknown]
  - Confusional state [Unknown]
  - Depression [Recovering/Resolving]
